FAERS Safety Report 7027818-3 (Version None)
Quarter: 2010Q4

REPORT INFORMATION
  Report Type: 
  Country: None (occurrence: None)
  Receive Date: 20101005
  Receipt Date: 20100923
  Transmission Date: 20110411
  Serious: Yes (Hospitalization, Other)
  Sender: FDA-Public Use
  Company Number: US-TYCO HEALTHCARE/MALLINCKRODT-T200801924

PATIENT
  Sex: Female
  Weight: 107.48 kg

DRUGS (14)
  1. OPTIMARK [Suspect]
     Indication: NUCLEAR MAGNETIC RESONANCE IMAGING
     Dosage: UNK
     Dates: start: 20041005, end: 20041005
  2. OMNISCAN [Suspect]
     Indication: NUCLEAR MAGNETIC RESONANCE IMAGING ABDOMINAL
     Dosage: UNK
     Dates: start: 20031202, end: 20031202
  3. GADOLINIUM [Suspect]
     Indication: NUCLEAR MAGNETIC RESONANCE IMAGING
     Dosage: UNK
     Dates: start: 20060829, end: 20060829
  4. WARFARIN SODIUM [Concomitant]
     Dosage: 3 MG, QD
  5. PREDNISONE [Concomitant]
     Dosage: 5 MG, QOD
  6. FLORINEF [Concomitant]
     Dosage: 0.1 MG, BID
  7. ROCALTROL [Concomitant]
     Dosage: 0.5 UG, QD
  8. PERCOCET [Concomitant]
     Dosage: 1-2 DAILY, PRN
  9. ATIVAN [Concomitant]
     Dosage: 2 MG, BID
  10. TUMS                               /00108001/ [Concomitant]
     Dosage: 2 TABS, QD
  11. ZANTAC                             /00550802/ [Concomitant]
     Dosage: 150 MG, QD (HS)
  12. ZYRTEC [Concomitant]
     Dosage: 10 MG, QD PRN
  13. OXYCONTIN [Concomitant]
     Dosage: 40 MG, BID
  14. COLACE [Concomitant]

REACTIONS (13)
  - FEMORAL ARTERY OCCLUSION [None]
  - GANGRENE [None]
  - GASTROENTERITIS VIRAL [None]
  - IMPAIRED HEALING [None]
  - INFECTION [None]
  - LIVIDITY [None]
  - NEPHROGENIC SYSTEMIC FIBROSIS [None]
  - OFF LABEL USE [None]
  - OSTEOMYELITIS [None]
  - SKIN ULCER [None]
  - SMALL INTESTINAL OBSTRUCTION [None]
  - STEAL SYNDROME [None]
  - WOUND INFECTION STAPHYLOCOCCAL [None]
